FAERS Safety Report 10549874 (Version 1)
Quarter: 2014Q4

REPORT INFORMATION
  Report Type: Spontaneous
  Country: JP (occurrence: JP)
  Receive Date: 20141028
  Receipt Date: 20141028
  Transmission Date: 20150529
  Serious: Yes (Hospitalization)
  Sender: FDA-Public Use
  Company Number: JP-PFIZER INC-2014291311

PATIENT
  Age: 45 Year
  Sex: Female

DRUGS (5)
  1. TEXMETEN [Concomitant]
     Dosage: UNK
     Route: 061
  2. CLINDAMYCIN PHOSPHATE. [Suspect]
     Active Substance: CLINDAMYCIN PHOSPHATE
     Indication: DERMATITIS ACNEIFORM
     Dosage: UNK
     Route: 061
  3. VIBRAMYCIN [Concomitant]
     Active Substance: DOXYCYCLINE
     Dosage: UNK
     Route: 048
  4. DALACIN T [Suspect]
     Active Substance: CLINDAMYCIN PHOSPHATE
     Indication: DERMATITIS ACNEIFORM
     Dosage: UNK
     Route: 061
  5. RULID [Concomitant]
     Active Substance: ROXITHROMYCIN
     Dosage: UNK
     Route: 048

REACTIONS (1)
  - Dermatitis contact [Recovered/Resolved]
